FAERS Safety Report 14668734 (Version 2)
Quarter: 2018Q1

REPORT INFORMATION
  Report Type: Spontaneous
  Country: JP (occurrence: JP)
  Receive Date: 20180322
  Receipt Date: 20180326
  Transmission Date: 20180509
  Serious: Yes (Hospitalization, Other)
  Sender: FDA-Public Use
  Company Number: JP-ASTRAZENECA-2018SE35711

PATIENT
  Age: 40 Year
  Sex: Female

DRUGS (12)
  1. LIMAS [Suspect]
     Active Substance: LITHIUM CARBONATE
     Indication: BIPOLAR I DISORDER
     Route: 048
  2. SENNOSIDE [Concomitant]
     Active Substance: SENNOSIDES
     Route: 048
  3. FAMOTIDINE. [Suspect]
     Active Substance: FAMOTIDINE
     Indication: PRODUCT USED FOR UNKNOWN INDICATION
     Dosage: 169.0MG ONCE/SINGLE ADMINISTRATION
     Route: 048
  4. LIMAS [Suspect]
     Active Substance: LITHIUM CARBONATE
     Indication: BIPOLAR I DISORDER
     Route: 048
  5. LIMAS [Suspect]
     Active Substance: LITHIUM CARBONATE
     Indication: BIPOLAR I DISORDER
     Dosage: 12800.0MG ONCE/SINGLE ADMINISTRATION
     Route: 048
  6. INVEGA [Concomitant]
     Active Substance: PALIPERIDONE
     Route: 048
  7. ROHYPNOL [Concomitant]
     Active Substance: FLUNITRAZEPAM
     Route: 048
  8. LANDSEN [Concomitant]
     Active Substance: CLONAZEPAM
     Route: 048
  9. LIMAS [Suspect]
     Active Substance: LITHIUM CARBONATE
     Indication: BIPOLAR I DISORDER
     Dosage: 12800.0MG ONCE/SINGLE ADMINISTRATION
     Route: 048
  10. LAMICTAL [Concomitant]
     Active Substance: LAMOTRIGINE
     Route: 048
  11. SEROQUEL [Suspect]
     Active Substance: QUETIAPINE FUMARATE
     Indication: PRODUCT USED FOR UNKNOWN INDICATION
     Dosage: 6300.0MG ONCE/SINGLE ADMINISTRATION
     Route: 048
  12. DEPAKENE [Concomitant]
     Active Substance: VALPROIC ACID
     Route: 048

REACTIONS (2)
  - Loss of consciousness [Recovered/Resolved]
  - Intentional overdose [Recovered/Resolved]
